FAERS Safety Report 7822346-7 (Version None)
Quarter: 2011Q4

REPORT INFORMATION
  Report Type: 
  Country: None (occurrence: None)
  Receive Date: 20111018
  Receipt Date: 20111011
  Transmission Date: 20120403
  Serious: Yes (Disabling)
  Sender: FDA-Public Use
  Company Number: US-ELI_LILLY_AND_COMPANY-US201110002285

PATIENT
  Sex: Female

DRUGS (5)
  1. HUMULIN N [Suspect]
     Dosage: UNK, PRN
     Dates: start: 19740101
  2. HUMULIN N [Suspect]
     Dosage: UNK, PRN
     Dates: start: 19740101
  3. HUMULIN N [Suspect]
     Dosage: UNK, PRN
     Dates: start: 19740101
  4. HUMULIN N [Suspect]
     Indication: DIABETES MELLITUS
     Dosage: UNK, PRN
     Dates: start: 19740101
  5. HUMULIN N [Suspect]
     Dosage: UNK, PRN
     Dates: start: 19740101

REACTIONS (4)
  - BACK DISORDER [None]
  - MALAISE [None]
  - RENAL DISORDER [None]
  - ADVERSE DRUG REACTION [None]
